FAERS Safety Report 4367800-8 (Version None)
Quarter: 2004Q2

REPORT INFORMATION
  Report Type: 
  Country: None (occurrence: None)
  Receive Date: 20040526
  Receipt Date: 20040311
  Transmission Date: 20050107
  Serious: Yes (Life-Threatening, Hospitalization)
  Sender: FDA-Public Use
  Company Number: USA040361621

PATIENT
  Age: 46 Year
  Sex: Male

DRUGS (1)
  1. ZYPREXA [Suspect]
     Indication: SCHIZOPHRENIA
     Dosage: 450 MG

REACTIONS (4)
  - DISORIENTATION [None]
  - DRY MOUTH [None]
  - OVERDOSE [None]
  - RESPIRATORY FAILURE [None]
